FAERS Safety Report 24190370 (Version 1)
Quarter: 2024Q3

REPORT INFORMATION
  Report Type: Report from Study
  Country: US (occurrence: None)
  Receive Date: 20240808
  Receipt Date: 20240808
  Transmission Date: 20241017
  Serious: Yes (Other)
  Sender: ASTRAZENECA
  Company Number: 2022A400624

PATIENT
  Sex: Female

DRUGS (1)
  1. TAGRISSO [Suspect]
     Active Substance: OSIMERTINIB
     Route: 048

REACTIONS (5)
  - Brain neoplasm malignant [Unknown]
  - Bone cancer [Unknown]
  - Dysphonia [Unknown]
  - Vagus nerve disorder [Unknown]
  - Dyspnoea [Unknown]
